FAERS Safety Report 8504983-X (Version None)
Quarter: 2012Q3

REPORT INFORMATION
  Report Type: 
  Country: None (occurrence: None)
  Receive Date: 20120712
  Receipt Date: 20120703
  Transmission Date: 20120928
  Serious: Yes (Other)
  Sender: FDA-Public Use
  Company Number: CL-ACCORD-014073

PATIENT

DRUGS (1)
  1. MITOMYCIN [Suspect]
     Route: 043

REACTIONS (3)
  - HAEMATURIA [None]
  - DYSURIA [None]
  - OFF LABEL USE [None]
